FAERS Safety Report 17106615 (Version 1)
Quarter: 2019Q4

REPORT INFORMATION
  Report Type: Spontaneous
  Country: US (occurrence: US)
  Receive Date: 20191203
  Receipt Date: 20191203
  Transmission Date: 20200122
  Serious: No
  Sender: FDA-Public Use
  Company Number: US-VERTEX PHARMACEUTICALS-2019-011769

PATIENT

DRUGS (1)
  1. TRIKAFTA [Suspect]
     Active Substance: ELEXACAFTOR\IVACAFTOR\TEZACAFTOR
     Indication: CYSTIC FIBROSIS
     Dosage: 100MG ELEXACAFTOR/50MG TEZACAFTOR/ 75MG IVACAFTOR AND 150MG IVACAFTOR (FREQ. UNK)
     Route: 048

REACTIONS (2)
  - Influenza like illness [Unknown]
  - Rash [Unknown]

NARRATIVE: CASE EVENT DATE: 2019
